FAERS Safety Report 9650677 (Version 1)
Quarter: 2013Q4

REPORT INFORMATION
  Report Type: Report from Study
  Country: US (occurrence: US)
  Receive Date: 20131029
  Receipt Date: 20131029
  Transmission Date: 20140711
  Serious: Yes (Hospitalization)
  Sender: FDA-Public Use
  Company Number: US-ROCHE-1292132

PATIENT
  Age: 63 Year
  Sex: Female
  Weight: 94.43 kg

DRUGS (10)
  1. HERCEPTIN [Suspect]
     Indication: BREAST CANCER
     Route: 065
     Dates: start: 20121226, end: 20130326
  2. TAXOL [Suspect]
     Indication: BREAST CANCER
     Route: 065
     Dates: start: 20130116, end: 20130326
  3. TAXOTERE [Concomitant]
     Indication: BREAST CANCER
     Route: 042
     Dates: start: 20121226, end: 20130116
  4. CYTOXAN [Concomitant]
     Indication: BREAST CANCER
     Route: 042
     Dates: start: 20121226, end: 20130326
  5. ACCURETIC [Concomitant]
     Indication: BLOOD PRESSURE
     Dosage: 20/25
     Route: 048
  6. LOVASTATIN [Concomitant]
     Indication: BLOOD CHOLESTEROL
     Route: 048
  7. LIPITOR [Concomitant]
     Indication: BLOOD CHOLESTEROL
     Route: 048
     Dates: start: 201302
  8. LEVOTHYROXINE [Concomitant]
     Indication: THYROID DISORDER
     Route: 048
  9. ASA [Concomitant]
     Route: 048
  10. BIOTIN [Concomitant]
     Route: 048

REACTIONS (5)
  - Fluid retention [Recovered/Resolved]
  - Breath sounds abnormal [Recovered/Resolved]
  - Dyspnoea [Recovered/Resolved]
  - Cardiac disorder [Recovered/Resolved]
  - Mastectomy [Unknown]
